FAERS Safety Report 10052820 (Version 2)
Quarter: 2014Q2

REPORT INFORMATION
  Report Type: Spontaneous
  Country: US (occurrence: US)
  Receive Date: 20140402
  Receipt Date: 20140424
  Transmission Date: 20141212
  Serious: No
  Sender: FDA-Public Use
  Company Number: US-BAXTER-2014BAX015808

PATIENT
  Sex: 0

DRUGS (1)
  1. 10% DEXTROSE INJECTION, USP [Suspect]
     Indication: PRODUCT USED FOR UNKNOWN INDICATION
     Route: 042
     Dates: start: 201403, end: 201403

REACTIONS (3)
  - Incorrect drug administration rate [Unknown]
  - Device infusion issue [Unknown]
  - Blood glucose increased [Recovered/Resolved]
